FAERS Safety Report 12171512 (Version 1)
Quarter: 2016Q1

REPORT INFORMATION
  Report Type: Spontaneous
  Country: US (occurrence: None)
  Receive Date: 20160310
  Receipt Date: 20160310
  Transmission Date: 20160526
  Serious: No
  Sender: FDA-Public Use
  Company Number: None

PATIENT
  Age: 69 Year
  Sex: Male

DRUGS (19)
  1. MULTIVITAMIN [Concomitant]
     Active Substance: VITAMINS
  2. SERTRALINE [Concomitant]
     Active Substance: SERTRALINE HYDROCHLORIDE
  3. TAMSULOSIN [Concomitant]
     Active Substance: TAMSULOSIN
  4. IBUPROFEN. [Concomitant]
     Active Substance: IBUPROFEN
  5. QUETIAPINE [Concomitant]
     Active Substance: QUETIAPINE
  6. VERAPAMIL [Concomitant]
     Active Substance: VERAPAMIL HYDROCHLORIDE
  7. FLUTICASONE [Concomitant]
     Active Substance: FLUTICASONE\FLUTICASONE PROPIONATE
  8. THIAMINE. [Concomitant]
     Active Substance: THIAMINE
  9. FUROSEMIDE. [Concomitant]
     Active Substance: FUROSEMIDE
  10. AVODART [Concomitant]
     Active Substance: DUTASTERIDE
  11. TOLTERODINE [Concomitant]
     Active Substance: TOLTERODINE
  12. NEXAVAR [Suspect]
     Active Substance: SORAFENIB
     Indication: HEPATIC CANCER
     Dosage: 2 TABLETS BID ORAL
     Route: 048
     Dates: start: 20150925, end: 20160309
  13. FOSINOPRIL [Concomitant]
     Active Substance: FOSINOPRIL
  14. HUMULIN NOS [Concomitant]
     Active Substance: INSULIN HUMAN
  15. LORATADINE. [Concomitant]
     Active Substance: LORATADINE
  16. LOSARTAN. [Concomitant]
     Active Substance: LOSARTAN
  17. NEXIUM [Concomitant]
     Active Substance: ESOMEPRAZOLE MAGNESIUM
  18. TRAZODONE [Concomitant]
     Active Substance: TRAZODONE HYDROCHLORIDE
  19. DOXAZOSIN [Concomitant]
     Active Substance: DOXAZOSIN\DOXAZOSIN MESYLATE

REACTIONS (1)
  - Hyperkeratosis [None]

NARRATIVE: CASE EVENT DATE: 20160309
